FAERS Safety Report 12875139 (Version 1)
Quarter: 2016Q4

REPORT INFORMATION
  Report Type: Spontaneous
  Country: US (occurrence: US)
  Receive Date: 20161024
  Receipt Date: 20161024
  Transmission Date: 20170207
  Serious: Yes (Other)
  Sender: FDA-Public Use
  Company Number: US-BEH-199601283BW

PATIENT
  Sex: Male

DRUGS (2)
  1. DDAVP [Concomitant]
     Active Substance: DESMOPRESSIN ACETATE
  2. HUMATE-P [Suspect]
     Active Substance: HUMAN COAGULATION FACTOR VIII/VON WILLEBRAND FACTOR COMPLEX
     Indication: PROPHYLAXIS
     Dosage: DAILY DOSE QUANTITY: 3600, DAILY DOSE UNIT: U
     Route: 042
     Dates: start: 19960709, end: 19960709

REACTIONS (2)
  - Hypersensitivity [Recovered/Resolved]
  - Urticaria [Recovered/Resolved]

NARRATIVE: CASE EVENT DATE: 19960709
